FAERS Safety Report 24927956 (Version 1)
Quarter: 2025Q1

REPORT INFORMATION
  Report Type: Spontaneous
  Country: BE (occurrence: BE)
  Receive Date: 20250205
  Receipt Date: 20250205
  Transmission Date: 20250409
  Serious: Yes (Death, Other)
  Sender: PFIZER
  Company Number: BE-PFIZER INC-PV202500012585

PATIENT
  Age: 67 Year
  Sex: Female

DRUGS (12)
  1. CARBOPLATIN [Suspect]
     Active Substance: CARBOPLATIN
     Indication: Ovarian epithelial cancer
     Dates: start: 2012
  2. CARBOPLATIN [Suspect]
     Active Substance: CARBOPLATIN
     Dates: start: 2013
  3. CARBOPLATIN [Suspect]
     Active Substance: CARBOPLATIN
     Dosage: WEEKLY, AUC 2
     Dates: start: 2014
  4. CARBOPLATIN [Suspect]
     Active Substance: CARBOPLATIN
     Dates: start: 2022, end: 202309
  5. PACLITAXEL [Suspect]
     Active Substance: PACLITAXEL
     Indication: Ovarian epithelial cancer
     Dates: start: 2012
  6. PACLITAXEL [Suspect]
     Active Substance: PACLITAXEL
     Dates: start: 2014
  7. BEVACIZUMAB [Suspect]
     Active Substance: BEVACIZUMAB
     Indication: Ovarian epithelial cancer
     Dates: start: 202402
  8. TALAZOPARIB [Suspect]
     Active Substance: TALAZOPARIB
     Indication: Ovarian epithelial cancer
     Dates: start: 202309
  9. DOXORUBICIN HYDROCHLORIDE [Suspect]
     Active Substance: DOXORUBICIN HYDROCHLORIDE
     Indication: Ovarian epithelial cancer
     Dates: start: 2013
  10. DOXORUBICIN HYDROCHLORIDE [Suspect]
     Active Substance: DOXORUBICIN HYDROCHLORIDE
     Dates: start: 202402
  11. OLAPARIB [Suspect]
     Active Substance: OLAPARIB
     Indication: Ovarian epithelial cancer
     Dates: start: 201504, end: 202305
  12. GRANULOCYTE COLONY-STIMULATING FACTOR NOS [Suspect]
     Active Substance: GRANULOCYTE COLONY-STIMULATING FACTOR NOS
     Indication: Ovarian epithelial cancer
     Dosage: 6 CYCLES Q THREE WEEKS
     Dates: start: 2012

REACTIONS (3)
  - Second primary malignancy [Fatal]
  - Acute myeloid leukaemia [Fatal]
  - Off label use [Unknown]

NARRATIVE: CASE EVENT DATE: 20230901
